FAERS Safety Report 12227375 (Version 2)
Quarter: 2016Q2

REPORT INFORMATION
  Report Type: Report from Study
  Country: US (occurrence: US)
  Receive Date: 20160331
  Receipt Date: 20160505
  Transmission Date: 20160815
  Serious: Yes (Hospitalization)
  Sender: FDA-Public Use
  Company Number: US-TARO-2016TAR00276

PATIENT
  Age: 75 Year
  Sex: Male
  Weight: 75.74 kg

DRUGS (22)
  1. MAXORIDE [Concomitant]
     Dosage: 400 MG, 2X/DAY
     Route: 048
     Dates: start: 1990
  2. LIPITOR [Concomitant]
     Active Substance: ATORVASTATIN CALCIUM
     Dosage: 40 MG, 1X/DAY
     Route: 048
     Dates: start: 2002
  3. ALDARA [Suspect]
     Active Substance: IMIQUIMOD
     Indication: ACTINIC KERATOSIS
     Dosage: 1 APPLICATION, 3X/WK, TOPICAL
     Route: 061
     Dates: start: 2016, end: 2016
  4. ASPIRIN. [Concomitant]
     Active Substance: ASPIRIN
     Dosage: 81 MG, 1X/DAY
     Route: 048
     Dates: start: 1990
  5. NIACIN. [Concomitant]
     Active Substance: NIACIN
     Dosage: 500 MG, 1X/DAY
     Route: 048
     Dates: start: 2002
  6. ISOSORBIDE MONONITRATE EXTENDED RELASE [Concomitant]
     Dosage: 2 TABLETS, 1X/DAY
     Route: 048
  7. MAGNESIUM OXIDE. [Concomitant]
     Active Substance: MAGNESIUM OXIDE
     Dosage: 1 TABLETS, 1X/DAY
     Route: 048
  8. NORVASC [Concomitant]
     Active Substance: AMLODIPINE BESYLATE
     Dosage: 1 TABLETS, 1X/DAY
     Route: 048
  9. GLYBURIDE. [Concomitant]
     Active Substance: GLYBURIDE
     Dosage: 5 MG, 2X/DAY
     Route: 048
     Dates: start: 2002
  10. RANEXA [Concomitant]
     Active Substance: RANOLAZINE
     Dosage: 500 MG, 2X/DAY
     Route: 048
     Dates: start: 1990
  11. ATENOLOL. [Concomitant]
     Active Substance: ATENOLOL
     Dosage: 25 MG, 1X/DAY
     Route: 048
     Dates: start: 1980
  12. DOXAZOSIN [Concomitant]
     Active Substance: DOXAZOSIN\DOXAZOSIN MESYLATE
     Dosage: 8 MG, 1X/DAY
     Route: 048
  13. BLINDED IMIQUIMOD CREAM 5% (BA/BE) [Suspect]
     Active Substance: IMIQUIMOD
     Indication: ACTINIC KERATOSIS
     Dosage: 1 APPLICATION, 3X/WK, TOPICAL
     Route: 061
     Dates: start: 2016, end: 2016
  14. BIOTIN [Concomitant]
     Active Substance: BIOTIN
     Dosage: 1 CAPSULES, 2X/DAY
     Route: 048
  15. MECLIZINE [Concomitant]
     Active Substance: MECLIZINE HYDROCHLORIDE
     Dosage: 1 TABLETS, AS NEEDED
     Route: 048
  16. BLINDED PLACEBO [Suspect]
     Active Substance: INVESTIGATIONAL PRODUCT
     Indication: ACTINIC KERATOSIS
     Dosage: 1 APPLICATION, 3X/WK, TOPICAL
     Route: 061
     Dates: start: 2016, end: 2016
  17. CINNAMON. [Concomitant]
     Active Substance: CINNAMON
     Dosage: 500 MG, 2X/DAY
     Route: 048
     Dates: start: 2002
  18. LISINOPRIL. [Concomitant]
     Active Substance: LISINOPRIL
     Dosage: 10 MG, 1X/DAY
     Route: 048
     Dates: start: 1990
  19. VITAMIN C [Concomitant]
     Active Substance: ASCORBIC ACID
     Dosage: 1000 MG, 1X/DAY
     Route: 048
  20. ONGLYZA [Concomitant]
     Active Substance: SAXAGLIPTIN HYDROCHLORIDE
     Indication: ACTINIC KERATOSIS
     Dosage: 5 MG, 1X/DAY
     Route: 048
     Dates: start: 2002
  21. OMEGA 3 FISH OIL [Concomitant]
     Active Substance: FISH OIL\OMEGA-3 FATTY ACIDS
     Dosage: 1000 MG, 2X/DAY
     Route: 048
     Dates: start: 1990
  22. CITALOPRAM [Concomitant]
     Active Substance: CITALOPRAM HYDROBROMIDE
     Dosage: 20 MG, 1X/DAY
     Route: 048
     Dates: start: 2002

REACTIONS (1)
  - Aneurysm [Unknown]

NARRATIVE: CASE EVENT DATE: 20160226
